FAERS Safety Report 12215934 (Version 2)
Quarter: 2016Q2

REPORT INFORMATION
  Report Type: Spontaneous
  Country: IT (occurrence: IT)
  Receive Date: 20160328
  Receipt Date: 20160405
  Transmission Date: 20160815
  Serious: Yes (Hospitalization)
  Sender: FDA-Public Use
  Company Number: IT-ELI_LILLY_AND_COMPANY-IT201603007041

PATIENT
  Age: 69 Year
  Sex: Male
  Weight: 110 kg

DRUGS (18)
  1. STILNOX [Concomitant]
     Active Substance: ZOLPIDEM TARTRATE
     Indication: BIPOLAR DISORDER
     Dosage: 10 MG, UNKNOWN
     Route: 048
  2. CARDIOASPIRIN [Suspect]
     Active Substance: ASPIRIN
     Dosage: 6 DF, OTHER
     Route: 048
     Dates: start: 20160218
  3. CARBOLITHIUM [Suspect]
     Active Substance: LITHIUM CARBONATE
     Indication: PRODUCT USED FOR UNKNOWN INDICATION
     Dosage: 150 MG, UNKNOWN
     Route: 065
  4. CARBOLITHIUM [Suspect]
     Active Substance: LITHIUM CARBONATE
     Dosage: 8 DF, OTHER
     Route: 048
     Dates: start: 20160218
  5. VALDORM                            /00246102/ [Concomitant]
     Active Substance: VALERIAN
     Indication: BIPOLAR DISORDER
     Dosage: 15 MG, UNKNOWN
     Route: 048
  6. STILNOX [Concomitant]
     Active Substance: ZOLPIDEM TARTRATE
     Indication: BIPOLAR DISORDER
  7. AKINETON [Concomitant]
     Active Substance: BIPERIDEN HYDROCHLORIDE
     Indication: BIPOLAR DISORDER
     Dosage: 2 MG, UNKNOWN
     Route: 048
  8. SERENASE                           /00027401/ [Concomitant]
     Active Substance: HALOPERIDOL
     Indication: BIPOLAR DISORDER
     Dosage: 2 MG, UNKNOWN
     Route: 048
  9. ZYPREXA [Suspect]
     Active Substance: OLANZAPINE
     Dosage: 4 DF, OTHER
     Route: 048
     Dates: start: 20160218
  10. ZYPREXA [Suspect]
     Active Substance: OLANZAPINE
     Indication: PRODUCT USED FOR UNKNOWN INDICATION
     Dosage: 2.5 MG, UNKNOWN
     Route: 065
  11. TAVOR (LORAZEPAM) [Concomitant]
     Active Substance: LORAZEPAM
     Indication: BIPOLAR DISORDER
     Dosage: 1 MG, UNKNOWN
     Route: 048
  12. TAVOR (LORAZEPAM) [Concomitant]
     Active Substance: LORAZEPAM
     Indication: BIPOLAR DISORDER
  13. SERENASE                           /00027401/ [Concomitant]
     Active Substance: HALOPERIDOL
     Indication: BIPOLAR DISORDER
  14. DEPAKINE                           /00228501/ [Suspect]
     Active Substance: VALPROIC ACID
     Indication: PRODUCT USED FOR UNKNOWN INDICATION
     Dosage: 200 MG, UNKNOWN
     Route: 065
  15. VALDORM                            /00246102/ [Concomitant]
     Active Substance: VALERIAN
     Indication: BIPOLAR DISORDER
  16. CARDIOASPIRIN [Suspect]
     Active Substance: ASPIRIN
     Indication: PRODUCT USED FOR UNKNOWN INDICATION
     Dosage: 100 MG, UNKNOWN
     Route: 065
  17. DEPAKINE                           /00228501/ [Suspect]
     Active Substance: VALPROIC ACID
     Dosage: 7 DF, OTHER
     Route: 048
     Dates: start: 20160218
  18. AKINETON [Concomitant]
     Active Substance: BIPERIDEN HYDROCHLORIDE
     Indication: BIPOLAR DISORDER

REACTIONS (6)
  - Drug abuse [Recovering/Resolving]
  - Sopor [Recovering/Resolving]
  - Communication disorder [Unknown]
  - Dysarthria [Recovering/Resolving]
  - Sluggishness [Recovering/Resolving]
  - Toxicity to various agents [Recovering/Resolving]

NARRATIVE: CASE EVENT DATE: 20160218
